FAERS Safety Report 4495789-X (Version None)
Quarter: 2004Q4

REPORT INFORMATION
  Report Type: 
  Country: None (occurrence: None)
  Receive Date: 20041104
  Receipt Date: 20041022
  Transmission Date: 20050328
  Serious: Yes (Hospitalization)
  Sender: FDA-Public Use
  Company Number: USO13776

PATIENT
  Age: 11 Year
  Sex: Male

DRUGS (2)
  1. GABITRIL [Suspect]
     Indication: SLEEP DISORDER
     Dosage: 2 MG BID ORAL
     Route: 048
     Dates: start: 20040719, end: 20040723
  2. SEROQUEL [Concomitant]

REACTIONS (2)
  - ELECTROENCEPHALOGRAM ABNORMAL [None]
  - STATUS EPILEPTICUS [None]
